FAERS Safety Report 9847287 (Version 1)
Quarter: 2014Q1

REPORT INFORMATION
  Report Type: Report from Study
  Country: DE (occurrence: DE)
  Receive Date: 20140127
  Receipt Date: 20140127
  Transmission Date: 20141002
  Serious: Yes (Other)
  Sender: FDA-Public Use
  Company Number: DE-ABBVIE-14P-062-1192266-00

PATIENT
  Age: 70 Year
  Sex: Female
  Weight: 60 kg

DRUGS (6)
  1. HUMIRA [Suspect]
     Indication: RHEUMATOID ARTHRITIS
     Route: 058
     Dates: start: 20030616, end: 201311
  2. PREDNISOLONE [Suspect]
     Indication: PRODUCT USED FOR UNKNOWN INDICATION
     Dates: start: 20120827
  3. QUENSYL [Suspect]
     Indication: PRODUCT USED FOR UNKNOWN INDICATION
     Dates: start: 20120430, end: 2013
  4. LEFLUNOMIDE [Suspect]
     Indication: PRODUCT USED FOR UNKNOWN INDICATION
     Dates: end: 2013
  5. GLUCOCORTICOIDS [Concomitant]
     Indication: PRODUCT USED FOR UNKNOWN INDICATION
     Dates: start: 20131111
  6. GLUCOCORTICOIDS [Concomitant]

REACTIONS (7)
  - Cutaneous lupus erythematosus [Recovered/Resolved]
  - Drug effect decreased [Unknown]
  - Gastroenteritis [Recovered/Resolved]
  - Nasopharyngitis [Recovered/Resolved]
  - Bursitis [Recovered/Resolved]
  - Pruritus generalised [Recovered/Resolved]
  - Dry skin [Recovered/Resolved]
